FAERS Safety Report 24409278 (Version 2)
Quarter: 2024Q4

REPORT INFORMATION
  Report Type: Spontaneous
  Country: US (occurrence: US)
  Receive Date: 20241008
  Receipt Date: 20241104
  Transmission Date: 20250115
  Serious: Yes (Life-Threatening, Hospitalization, Other)
  Sender: AUROBINDO
  Company Number: US-MLMSERVICE-20240919-PI196565-00117-1

PATIENT
  Age: 39 Year
  Sex: Male

DRUGS (9)
  1. DEXAMETHASONE [Suspect]
     Active Substance: DEXAMETHASONE
     Indication: Antiemetic supportive care
     Dosage: RECEIVED DEXAMETHASONE FOLLOWING EACH CYCLE OF CHEMOTHERAPY
     Route: 065
  2. CYCLOPHOSPHAMIDE [Suspect]
     Active Substance: CYCLOPHOSPHAMIDE
     Indication: Breast cancer male
     Dosage: 4 CYCLES OF CYCLOPHOSPHAMIDE
     Route: 065
  3. CYCLOPHOSPHAMIDE [Suspect]
     Active Substance: CYCLOPHOSPHAMIDE
     Indication: Invasive ductal breast carcinoma
  4. TAXOL [Suspect]
     Active Substance: PACLITAXEL
     Indication: Breast cancer male
     Dosage: 1 DOSE OF PACLITAXEL PRIOR TO PRESENTATION
     Route: 065
  5. TAXOL [Suspect]
     Active Substance: PACLITAXEL
     Indication: Hormone receptor negative HER2 positive breast cancer
  6. DOXORUBICIN [Suspect]
     Active Substance: DOXORUBICIN
     Indication: Invasive ductal breast carcinoma
     Dosage: 4 CYCLES OF NEOADJUVANT DOSE-DENSE DOXORUBICIN
     Route: 065
  7. DOXORUBICIN [Suspect]
     Active Substance: DOXORUBICIN
     Indication: Hormone receptor negative HER2 positive breast cancer
  8. CYTOXAN [Suspect]
     Active Substance: CYCLOPHOSPHAMIDE
     Indication: Hormone receptor negative HER2 positive breast cancer
     Dosage: UNK,4 CYCLES OF NEOADJUVANT DOSE-DENSE
     Route: 065
  9. CYTOXAN [Suspect]
     Active Substance: CYCLOPHOSPHAMIDE
     Indication: Invasive ductal breast carcinoma

REACTIONS (4)
  - Pneumocystis jirovecii pneumonia [Recovered/Resolved]
  - Neutropenia [Recovered/Resolved]
  - Pulmonary embolism [Recovered/Resolved]
  - Haemoglobin decreased [Unknown]
